FAERS Safety Report 7743499-5 (Version None)
Quarter: 2011Q3

REPORT INFORMATION
  Report Type: 
  Country: None (occurrence: None)
  Receive Date: 20110912
  Receipt Date: 20110829
  Transmission Date: 20111222
  Serious: Yes (Other)
  Sender: FDA-Public Use
  Company Number: US-ABBOTT-11P-163-0846948-00

PATIENT
  Sex: Male
  Weight: 25.424 kg

DRUGS (3)
  1. MIRALAX [Interacting]
     Indication: CONSTIPATION
     Dosage: 17 G DAILY
  2. DEPAKOTE [Suspect]
     Indication: CONVULSION
     Dosage: ONE IN MORNING AND AFTERNOON
  3. DEPAKOTE [Suspect]
     Route: 048

REACTIONS (4)
  - NIGHTMARE [None]
  - DRUG INTERACTION [None]
  - CONVULSION [None]
  - CONSTIPATION [None]
